FAERS Safety Report 25790787 (Version 1)
Quarter: 2025Q3

REPORT INFORMATION
  Report Type: Spontaneous
  Country: US (occurrence: US)
  Receive Date: 20250911
  Receipt Date: 20250911
  Transmission Date: 20251021
  Serious: Yes (Other)
  Sender: TEVA
  Company Number: US-TEVA-VS-3371521

PATIENT
  Age: 71 Year
  Sex: Female

DRUGS (1)
  1. SCOPOLAMINE [Suspect]
     Active Substance: SCOPOLAMINE
     Indication: Prophylaxis of nausea and vomiting
     Dosage: 1MG/72HR, 1 PATCH EVERY 3 DAYS
     Route: 065

REACTIONS (5)
  - Hallucination [Unknown]
  - Emotional distress [Unknown]
  - Confusional state [Unknown]
  - Adverse event [Unknown]
  - Memory impairment [Unknown]
